FAERS Safety Report 7023561-5 (Version None)
Quarter: 2010Q3

REPORT INFORMATION
  Report Type: 
  Country: None (occurrence: None)
  Receive Date: 20100930
  Receipt Date: 20100922
  Transmission Date: 20110219
  Serious: Yes (Hospitalization)
  Sender: FDA-Public Use
  Company Number: CA-GENENTECH-254063

PATIENT
  Age: 63 Year
  Sex: Male
  Weight: 90.7 kg

DRUGS (4)
  1. RITUXAN [Suspect]
     Indication: LYMPHOPLASMACYTOID LYMPHOMA/IMMUNOCYTOMA
     Dosage: 375 MG/M2, Q3M
     Route: 042
     Dates: start: 20061215, end: 20070501
  2. RITUXAN [Suspect]
     Dosage: 375 MG/M2, Q3M
     Route: 042
     Dates: start: 20070801, end: 20071101
  3. FLUDARABINE [Concomitant]
     Indication: PRODUCT USED FOR UNKNOWN INDICATION
     Dosage: UNK
     Dates: start: 20061201, end: 20070501
  4. FLUDARABINE [Concomitant]
     Dosage: UNK
     Dates: start: 20070801, end: 20071101

REACTIONS (1)
  - BROWN-SEQUARD SYNDROME [None]
